FAERS Safety Report 4795372-2 (Version None)
Quarter: 2005Q4

REPORT INFORMATION
  Report Type: 
  Country: None (occurrence: None)
  Receive Date: 20051007
  Receipt Date: 20051007
  Transmission Date: 20060501
  Serious: No
  Sender: FDA-Public Use
  Company Number: None

PATIENT
  Sex: Female
  Weight: 65.7716 kg

DRUGS (2)
  1. ETANERCEPT [Suspect]
     Indication: RHEUMATOID ARTHRITIS
     Dosage: 50 MG WEEKLY SQ
     Route: 058
     Dates: start: 20050511, end: 20050805
  2. TRIAMTERENE/HCTZ ATENOLOL [Concomitant]

REACTIONS (2)
  - LUNG INFILTRATION [None]
  - PULMONARY FUNCTION TEST DECREASED [None]
